FAERS Safety Report 8592558-6 (Version None)
Quarter: 2012Q3

REPORT INFORMATION
  Report Type: 
  Country: None (occurrence: None)
  Receive Date: 20120814
  Receipt Date: 20120806
  Transmission Date: 20120928
  Serious: No
  Sender: FDA-Public Use
  Company Number: US-009507513-1207USA009622

PATIENT

DRUGS (6)
  1. METFORMIN HCL [Concomitant]
  2. VICTOZA [Concomitant]
  3. JANUMET XR [Suspect]
     Dosage: 50/1000 MG, BID
     Route: 048
     Dates: end: 20120410
  4. JANUVIA [Suspect]
     Indication: TYPE 2 DIABETES MELLITUS
     Dosage: 100 MG, QD
     Route: 048
  5. LANTUS [Concomitant]
  6. JANUMET XR [Suspect]
     Indication: TYPE 2 DIABETES MELLITUS
     Dosage: 100/1000 MG, QD
     Route: 048

REACTIONS (1)
  - BLOOD GLUCOSE INCREASED [None]
